FAERS Safety Report 20137726 (Version 2)
Quarter: 2021Q4

REPORT INFORMATION
  Report Type: Spontaneous
  Country: US (occurrence: US)
  Receive Date: 20211202
  Receipt Date: 20211220
  Transmission Date: 20220303
  Serious: No
  Sender: FDA-Public Use
  Company Number: US-EPICPHARMA-US-2021EPCSPO01225

PATIENT
  Sex: Male

DRUGS (1)
  1. MEPERIDINE [Suspect]
     Active Substance: MEPERIDINE
     Indication: Pain
     Route: 065

REACTIONS (2)
  - Drug ineffective [Unknown]
  - Product substitution issue [Unknown]
